FAERS Safety Report 7193836-8 (Version None)
Quarter: 2010Q4

REPORT INFORMATION
  Report Type: 
  Country: None (occurrence: None)
  Receive Date: 20101223
  Receipt Date: 20100912
  Transmission Date: 20110411
  Serious: No
  Sender: FDA-Public Use
  Company Number: US-AMGEN-TCS437856

PATIENT

DRUGS (1)
  1. ENBREL [Suspect]
     Indication: PSORIASIS
     Dosage: 50 MG, QWK
     Route: 058

REACTIONS (5)
  - COUGH [None]
  - DYSPHONIA [None]
  - MULTIPLE ALLERGIES [None]
  - NASOPHARYNGITIS [None]
  - OROPHARYNGEAL PAIN [None]
